FAERS Safety Report 19562470 (Version 2)
Quarter: 2021Q3

REPORT INFORMATION
  Report Type: Spontaneous
  Country: AT (occurrence: AT)
  Receive Date: 20210716
  Receipt Date: 20210720
  Transmission Date: 20211014
  Serious: Yes (Hospitalization)
  Sender: FDA-Public Use
  Company Number: NVSC2021AT151911

PATIENT
  Age: 21 Year
  Sex: Female

DRUGS (2)
  1. BUSCOPAN [Suspect]
     Active Substance: BUTYLSCOPOLAMINE BROMIDE
     Indication: PRODUCT USED FOR UNKNOWN INDICATION
     Dosage: UNK(GEMAB FACHINFORMATION)
     Route: 048
     Dates: start: 20210106, end: 20210106
  2. PARACETAMOL [Suspect]
     Active Substance: ACETAMINOPHEN
     Indication: PRODUCT USED FOR UNKNOWN INDICATION
     Dosage: UNK(GEMAB FACHINFORMATION)
     Route: 048
     Dates: start: 20210106, end: 20210106

REACTIONS (4)
  - Bronchitis [Recovered/Resolved]
  - Urticaria [Recovered/Resolved]
  - Type I hypersensitivity [Recovered/Resolved]
  - Swollen tongue [Recovered/Resolved]

NARRATIVE: CASE EVENT DATE: 20210106
